FAERS Safety Report 21230449 (Version 2)
Quarter: 2022Q3

REPORT INFORMATION
  Report Type: Spontaneous
  Country: US (occurrence: US)
  Receive Date: 20220818
  Receipt Date: 20220901
  Transmission Date: 20221027
  Serious: Yes (Life-Threatening, Hospitalization)
  Sender: FDA-Public Use
  Company Number: US-TEVA-2022-US-2064459

PATIENT
  Sex: Female
  Weight: 2.34 kg

DRUGS (9)
  1. LEVETIRACETAM [Suspect]
     Active Substance: LEVETIRACETAM
     Indication: Vein of Galen aneurysmal malformation
     Route: 065
  2. EPINEPHRINE [Suspect]
     Active Substance: EPINEPHRINE
     Indication: Vein of Galen aneurysmal malformation
     Route: 065
  3. MILRINONE [Suspect]
     Active Substance: MILRINONE
     Indication: Vein of Galen aneurysmal malformation
     Route: 050
  4. FUROSEMIDE [Suspect]
     Active Substance: FUROSEMIDE
     Indication: Vein of Galen aneurysmal malformation
     Route: 050
  5. DOPAMINE [Suspect]
     Active Substance: DOPAMINE HYDROCHLORIDE
     Indication: Vein of Galen aneurysmal malformation
     Route: 050
  6. VASOPRESSIN [Suspect]
     Active Substance: VASOPRESSIN
     Indication: Vein of Galen aneurysmal malformation
     Route: 065
  7. PHENOBARBITAL [Suspect]
     Active Substance: PHENOBARBITAL
     Indication: Vein of Galen aneurysmal malformation
     Route: 065
  8. MIDAZOLAM [Suspect]
     Active Substance: MIDAZOLAM
     Indication: Vein of Galen aneurysmal malformation
     Route: 065
  9. NITRIC OXIDE [Suspect]
     Active Substance: NITRIC OXIDE
     Indication: Vein of Galen aneurysmal malformation
     Route: 055

REACTIONS (1)
  - Treatment failure [Unknown]
